FAERS Safety Report 7319421-2 (Version None)
Quarter: 2011Q1

REPORT INFORMATION
  Report Type: 
  Country: None (occurrence: None)
  Receive Date: 20110228
  Receipt Date: 20100513
  Transmission Date: 20110831
  Serious: No
  Sender: FDA-Public Use
  Company Number: A0850881A

PATIENT
  Age: 55 Year
  Sex: Female
  Weight: 77.3 kg

DRUGS (3)
  1. LAMICTAL [Suspect]
     Dosage: 200MG UNKNOWN
     Route: 048
     Dates: start: 20091022, end: 20100316
  2. TRAZODONE [Concomitant]
     Indication: INSOMNIA
     Dosage: 25MG SINGLE DOSE
     Route: 048
     Dates: start: 20100311, end: 20100401
  3. KLONOPIN [Concomitant]
     Indication: ANXIETY
     Dosage: .5MG AT NIGHT
     Route: 048
     Dates: start: 20100312, end: 20100316

REACTIONS (1)
  - RASH [None]
